FAERS Safety Report 5046038-5 (Version None)
Quarter: 2006Q3

REPORT INFORMATION
  Report Type: 
  Country: None (occurrence: None)
  Receive Date: 20060710
  Receipt Date: 20060629
  Transmission Date: 20061208
  Serious: Yes (Other)
  Sender: FDA-Public Use
  Company Number: PHEH2006US08485

PATIENT
  Sex: Female

DRUGS (3)
  1. ZOMETA [Suspect]
  2. AREDIA [Suspect]
  3. FOSAMAX [Suspect]

REACTIONS (1)
  - OSTEONECROSIS [None]
